FAERS Safety Report 8576276-6 (Version None)
Quarter: 2012Q3

REPORT INFORMATION
  Report Type: 
  Country: None (occurrence: None)
  Receive Date: 20120807
  Receipt Date: 20120702
  Transmission Date: 20120928
  Serious: No
  Sender: FDA-Public Use
  Company Number: US-009507513-2012SP036225

PATIENT

DRUGS (5)
  1. DIVALPROEX SODIUM [Concomitant]
     Indication: CONVULSION
     Dosage: 750 MG, QD
  2. CLARITIN-D 24 HOUR [Suspect]
     Indication: RHINORRHOEA
  3. LEVETIRACETAM [Concomitant]
     Indication: CONVULSION
     Dosage: 500 MG, BID
  4. CLARITIN-D 24 HOUR [Suspect]
     Indication: SNEEZING
     Dosage: 10 MG, ONCE
     Route: 048
     Dates: start: 20120502, end: 20120503
  5. VIMPAT [Concomitant]
     Indication: CONVULSION
     Dosage: 200 MG, BID

REACTIONS (2)
  - DIZZINESS [None]
  - DIPLOPIA [None]
